FAERS Safety Report 4274715-2 (Version None)
Quarter: 2004Q1

REPORT INFORMATION
  Report Type: 
  Country: None (occurrence: None)
  Receive Date: 20040115
  Receipt Date: 20040107
  Transmission Date: 20041129
  Serious: Yes (Other)
  Sender: FDA-Public Use
  Company Number: STA-AE-04-MTX-005

PATIENT
  Age: 70 Year
  Sex: Male

DRUGS (1)
  1. METHOTREXATE [Suspect]
     Indication: TEMPORAL ARTERITIS

REACTIONS (1)
  - CRYPTOGENIC ORGANIZING PNEUMONIA [None]
